FAERS Safety Report 21549093 (Version 1)
Quarter: 2022Q4

REPORT INFORMATION
  Report Type: Spontaneous
  Country: US (occurrence: US)
  Receive Date: 20221103
  Receipt Date: 20221103
  Transmission Date: 20230112
  Serious: Yes (Death, Other)
  Sender: FDA-Public Use
  Company Number: US-INCYTE CORPORATION-2022IN010524

PATIENT

DRUGS (1)
  1. JAKAFI [Suspect]
     Active Substance: RUXOLITINIB
     Dosage: 5 MILLIGRAM, 3 TIMES WEEKLY
     Route: 048
     Dates: start: 20220804, end: 20221004

REACTIONS (2)
  - Respiratory failure [Fatal]
  - Cardiac arrest [Fatal]
